FAERS Safety Report 10868202 (Version 15)
Quarter: 2016Q4

REPORT INFORMATION
  Report Type: Spontaneous
  Country: US (occurrence: US)
  Receive Date: 20150225
  Receipt Date: 20161209
  Transmission Date: 20170206
  Serious: Yes (Other)
  Sender: FDA-Public Use
  Company Number: US-SANOFI-AVENTIS-2012SA018157

PATIENT
  Age: 58 Year
  Sex: Male
  Weight: 113.4 kg

DRUGS (31)
  1. LOVASTATIN. [Concomitant]
     Active Substance: LOVASTATIN
  2. TRICOR [Concomitant]
     Active Substance: FENOFIBRATE
  3. ZOCOR [Concomitant]
     Active Substance: SIMVASTATIN
     Dates: start: 20110204
  4. EXCEDRIN [Concomitant]
     Active Substance: ACETAMINOPHEN\ASPIRIN\CAFFEINE
  5. ACIPHEX [Concomitant]
     Active Substance: RABEPRAZOLE SODIUM
  6. LORTAB [Concomitant]
     Active Substance: ACETAMINOPHEN\HYDROCODONE BITARTRATE
  7. LEVOTHYROXINE. [Concomitant]
     Active Substance: LEVOTHYROXINE
  8. IMDUR [Concomitant]
     Active Substance: ISOSORBIDE MONONITRATE
     Route: 048
  9. COLACE [Concomitant]
     Active Substance: DOCUSATE SODIUM
     Route: 048
  10. ZOLOFT [Concomitant]
     Active Substance: SERTRALINE HYDROCHLORIDE
  11. CYCLOBENZAPRINE [Concomitant]
     Active Substance: CYCLOBENZAPRINE
  12. LEVAQUIN [Concomitant]
     Active Substance: LEVOFLOXACIN
  13. ASPIRIN. [Suspect]
     Active Substance: ASPIRIN
     Route: 048
     Dates: start: 200204
  14. XANAX [Concomitant]
     Active Substance: ALPRAZOLAM
  15. ZESTRIL [Concomitant]
     Active Substance: LISINOPRIL
     Route: 048
  16. PLAVIX [Suspect]
     Active Substance: CLOPIDOGREL BISULFATE
     Indication: MYOCARDIAL INFARCTION
     Route: 065
     Dates: start: 20020424, end: 20081231
  17. PREDNISONE. [Concomitant]
     Active Substance: PREDNISONE
  18. FIORICET [Concomitant]
     Active Substance: ACETAMINOPHEN\BUTALBITAL\CAFFEINE
  19. VICODIN [Concomitant]
     Active Substance: ACETAMINOPHEN\HYDROCODONE BITARTRATE
  20. MORPHINE SULPHATE [Concomitant]
     Active Substance: MORPHINE SULFATE
     Indication: PAIN
     Dosage: 2 MG
  21. TYLENOL [Concomitant]
     Active Substance: ACETAMINOPHEN
  22. FLEXERIL [Concomitant]
     Active Substance: CYCLOBENZAPRINE HYDROCHLORIDE
  23. MEVACOR [Concomitant]
     Active Substance: LOVASTATIN
     Route: 048
  24. LIPITOR [Concomitant]
     Active Substance: ATORVASTATIN CALCIUM
  25. METOPROLOL. [Concomitant]
     Active Substance: METOPROLOL
  26. AMBIEN [Concomitant]
     Active Substance: ZOLPIDEM TARTRATE
  27. ZOLPIDEM [Concomitant]
     Active Substance: ZOLPIDEM\ZOLPIDEM TARTRATE
  28. PLAVIX [Suspect]
     Active Substance: CLOPIDOGREL BISULFATE
     Indication: VASCULAR GRAFT
     Route: 065
     Dates: start: 20020424, end: 20081231
  29. LISINOPRIL. [Concomitant]
     Active Substance: LISINOPRIL
  30. ALPRAZOLAM. [Concomitant]
     Active Substance: ALPRAZOLAM
  31. MACROBID [Concomitant]
     Active Substance: NITROFURANTOIN\NITROFURANTOIN MONOHYDRATE

REACTIONS (7)
  - Haematuria [Unknown]
  - Prostate infection [Unknown]
  - Urinary bladder haemorrhage [Unknown]
  - Cerebral haemorrhage [Unknown]
  - Gastrointestinal haemorrhage [Unknown]
  - Renal haemorrhage [Unknown]
  - Cystitis [Unknown]

NARRATIVE: CASE EVENT DATE: 200812
